FAERS Safety Report 12478339 (Version 12)
Quarter: 2019Q1

REPORT INFORMATION
  Report Type: Spontaneous
  Country: US (occurrence: US)
  Receive Date: 20160617
  Receipt Date: 20190206
  Transmission Date: 20190417
  Serious: Yes (Other)
  Sender: FDA-Public Use
  Company Number: US-ASTRAZENECA-2016SE61653

PATIENT
  Age: 61 Year
  Sex: Female
  Weight: 48.1 kg

DRUGS (5)
  1. TUDORZA [Suspect]
     Active Substance: ACLIDINIUM BROMIDE
     Indication: CHRONIC OBSTRUCTIVE PULMONARY DISEASE
     Route: 055
  2. ADVAIR HFA [Concomitant]
     Active Substance: FLUTICASONE PROPIONATE\SALMETEROL XINAFOATE
     Dosage: 500 DISC 1 PUFF TWICE PER DAY
     Route: 055
     Dates: start: 1995
  3. TUDORZA [Suspect]
     Active Substance: ACLIDINIUM BROMIDE
     Indication: CHRONIC OBSTRUCTIVE PULMONARY DISEASE
     Route: 055
     Dates: start: 2015
  4. VALIUM [Concomitant]
     Active Substance: DIAZEPAM
     Dosage: 5MG
     Route: 048
     Dates: start: 2014
  5. ADVAIR HFA [Concomitant]
     Active Substance: FLUTICASONE PROPIONATE\SALMETEROL XINAFOATE
     Dosage: 500 DISC 1 PUFF TWICE PER DAY
     Route: 055
     Dates: start: 1998

REACTIONS (15)
  - Product dose omission [Unknown]
  - Memory impairment [Unknown]
  - Musculoskeletal discomfort [Unknown]
  - Intentional product misuse [Unknown]
  - Asthenia [Unknown]
  - Gait disturbance [Unknown]
  - Product taste abnormal [Unknown]
  - Lymphoma [Unknown]
  - Visual impairment [Unknown]
  - Heart rate increased [Unknown]
  - Feeling abnormal [Unknown]
  - Anxiety [Unknown]
  - Nervousness [Unknown]
  - Device malfunction [Unknown]
  - Frustration tolerance decreased [Unknown]

NARRATIVE: CASE EVENT DATE: 2016
